FAERS Safety Report 8378749-8 (Version None)
Quarter: 2012Q2

REPORT INFORMATION
  Report Type: 
  Country: None (occurrence: None)
  Receive Date: 20120522
  Receipt Date: 20090331
  Transmission Date: 20120825
  Serious: No
  Sender: FDA-Public Use
  Company Number: PHHY2009GB12491

PATIENT
  Sex: Female

DRUGS (3)
  1. CITALOPRAM [Concomitant]
     Indication: DEPRESSION
     Dosage: 20 MG, BID
  2. TASIGNA [Suspect]
     Indication: CHRONIC MYELOID LEUKAEMIA
     Dosage: 400 MG, BID
     Dates: start: 20080701
  3. AMLODIPINE BESYLATE [Concomitant]
     Dosage: 10 MG, UNK

REACTIONS (3)
  - DRY SKIN [None]
  - DEPRESSION [None]
  - FLUID RETENTION [None]
